FAERS Safety Report 6956892-5 (Version None)
Quarter: 2010Q3

REPORT INFORMATION
  Report Type: 
  Country: None (occurrence: None)
  Receive Date: 20100830
  Receipt Date: 20100513
  Transmission Date: 20110219
  Serious: No
  Sender: FDA-Public Use
  Company Number: US-ALLERGAN-1006342US

PATIENT
  Age: 95 Year
  Sex: Male

DRUGS (6)
  1. SANCTURA XR [Suspect]
     Indication: HYPERTONIC BLADDER
     Dosage: UNK
  2. LISINOPRIL [Concomitant]
  3. PROSCAR [Concomitant]
  4. CALCIUM [Concomitant]
  5. TYLENOL-500 [Concomitant]
     Dosage: UNK
  6. FOSAMAX [Concomitant]

REACTIONS (1)
  - ERUCTATION [None]
